FAERS Safety Report 14519151 (Version 1)
Quarter: 2018Q1

REPORT INFORMATION
  Report Type: Spontaneous
  Country: DE (occurrence: DE)
  Receive Date: 20180212
  Receipt Date: 20180212
  Transmission Date: 20180509
  Serious: Yes (Other)
  Sender: FDA-Public Use
  Company Number: DE-WEST-WARD PHARMACEUTICALS CORP.-DE-H14001-18-00909

PATIENT
  Sex: Male
  Weight: 2.2 kg

DRUGS (4)
  1. ONDANSETRON [Concomitant]
     Active Substance: ONDANSETRON
     Indication: PRODUCT USED FOR UNKNOWN INDICATION
     Dosage: 8 MG, DAILY
     Route: 064
  2. EMEND [Concomitant]
     Active Substance: APREPITANT
     Indication: PRODUCT USED FOR UNKNOWN INDICATION
     Dosage: 125 MG, DAILY; DAY 1
     Route: 064
  3. CISPLATIN. [Suspect]
     Active Substance: CISPLATIN
     Indication: CERVIX CARCINOMA
     Route: 064
     Dates: start: 20171020, end: 20171117
  4. EMEND [Concomitant]
     Active Substance: APREPITANT
     Dosage: 80 MG, DAILY; DAY 2 AND 3
     Route: 048

REACTIONS (3)
  - Foetal exposure during pregnancy [Unknown]
  - Neonatal disorder [Unknown]
  - Premature baby [Unknown]

NARRATIVE: CASE EVENT DATE: 2017
